FAERS Safety Report 9704537 (Version 3)
Quarter: 2014Q1

REPORT INFORMATION
  Report Type: Spontaneous
  Country: BR (occurrence: BR)
  Receive Date: 20131122
  Receipt Date: 20140224
  Transmission Date: 20141002
  Serious: Yes (Life-Threatening, Hospitalization, Other)
  Sender: FDA-Public Use
  Company Number: BR-ROCHE-1303821

PATIENT
  Age: 83 Year
  Sex: Male
  Weight: 70 kg

DRUGS (4)
  1. RIVOTRIL [Suspect]
     Indication: INSOMNIA
     Dosage: 3 DROPS/DAY
     Route: 048
  2. RIVOTRIL [Suspect]
     Route: 065
  3. LITHIUM CARBONATE [Concomitant]
     Indication: BIPOLAR DISORDER
     Route: 048
  4. TYLENOL [Concomitant]
     Indication: BACK PAIN
     Dosage: A TABLET ONCE A DAY
     Route: 048

REACTIONS (11)
  - Poisoning [Unknown]
  - Throat tightness [Recovered/Resolved]
  - Haemorrhoids [Not Recovered/Not Resolved]
  - Sneezing [Recovered/Resolved]
  - Abdominal pain [Recovered/Resolved]
  - Abdominal distension [Recovered/Resolved]
  - Medication error [Unknown]
  - Varicose vein [Not Recovered/Not Resolved]
  - Pain in extremity [Not Recovered/Not Resolved]
  - Self-medication [Unknown]
  - Hypersensitivity [Unknown]
